FAERS Safety Report 8265167-6 (Version None)
Quarter: 2012Q2

REPORT INFORMATION
  Report Type: 
  Country: None (occurrence: None)
  Receive Date: 20120406
  Receipt Date: 20120330
  Transmission Date: 20120825
  Serious: Yes (Death)
  Sender: FDA-Public Use
  Company Number: US-ROCHE-1055638

PATIENT

DRUGS (8)
  1. RESTORIL [Concomitant]
  2. LISINOPRIL [Concomitant]
  3. AVASTIN [Suspect]
     Indication: BREAST CANCER
     Dosage: LAST DOSE PRIOR TO EVENT: 08/DEC/2010
     Dates: start: 20100601
  4. DOCETAXEL [Suspect]
     Indication: BREAST CANCER
     Dosage: LAST DOSE PRIOR TO EVENT: 14/SEP/2010
     Dates: start: 20100601
  5. COUMADIN [Concomitant]
  6. CYCLOPHOSPHAMIDE [Suspect]
     Indication: BREAST CANCER
     Dosage: LAST DOSE PRIOR TO EVENT: 14/SEP/2010
     Dates: start: 20100601
  7. ATIVAN [Concomitant]
  8. GAVISCON (ALGINIC ACID) [Concomitant]

REACTIONS (1)
  - CARDIAC FAILURE [None]
